FAERS Safety Report 13650854 (Version 2)
Quarter: 2017Q2

REPORT INFORMATION
  Report Type: Spontaneous
  Country: BR (occurrence: BR)
  Receive Date: 20170614
  Receipt Date: 20170621
  Transmission Date: 20170830
  Serious: Yes (Hospitalization)
  Sender: FDA-Public Use
  Company Number: BR-009507513-1706BRA005662

PATIENT
  Age: 9 Year
  Sex: Male

DRUGS (1)
  1. VIATINE [Suspect]
     Active Substance: MONTELUKAST SODIUM
     Indication: RHINITIS
     Dosage: 5 MG, QPM
     Route: 048
     Dates: start: 20170412

REACTIONS (12)
  - Fall [Unknown]
  - Gait disturbance [Unknown]
  - Vision blurred [Unknown]
  - Head injury [Unknown]
  - Agitation [Unknown]
  - Crying [Unknown]
  - Balance disorder [Unknown]
  - Dyslalia [Unknown]
  - Paraesthesia [Unknown]
  - Dizziness [Unknown]
  - Disorientation [Unknown]
  - Anxiety [Unknown]

NARRATIVE: CASE EVENT DATE: 20170413
